FAERS Safety Report 17257290 (Version 1)
Quarter: 2020Q1

REPORT INFORMATION
  Report Type: Spontaneous
  Country: US (occurrence: US)
  Receive Date: 20200110
  Receipt Date: 20200110
  Transmission Date: 20200409
  Serious: Yes (Hospitalization)
  Sender: FDA-Public Use
  Company Number: NVSC2020US003148

PATIENT
  Age: 47 Year
  Sex: Male

DRUGS (1)
  1. DABRAFENIB,TRAMETINIB [Suspect]
     Active Substance: DABRAFENIB\TRAMETINIB
     Indication: ANAPLASTIC ASTROCYTOMA
     Dosage: DABRAFENIB 150 MG TWICE DAILY AND TRAMETINIB 2 MG DAILY
     Route: 048

REACTIONS (3)
  - Product use in unapproved indication [Unknown]
  - Anaplastic astrocytoma [Unknown]
  - Malignant neoplasm progression [Unknown]
